FAERS Safety Report 11418409 (Version 1)
Quarter: 2015Q3

REPORT INFORMATION
  Report Type: Report from Study
  Country: US (occurrence: US)
  Receive Date: 20150826
  Receipt Date: 20150826
  Transmission Date: 20151125
  Serious: Yes (Disabling)
  Sender: FDA-Public Use
  Company Number: US-ROCHE-GNE093827

PATIENT
  Age: 45 Year
  Sex: Female
  Weight: 79.79 kg

DRUGS (3)
  1. NUTROPIN AQ [Suspect]
     Active Substance: SOMATROPIN
     Indication: DWARFISM
     Route: 058
     Dates: start: 19990707, end: 19990917
  2. NUTROPIN AQ [Suspect]
     Active Substance: SOMATROPIN
     Route: 058
     Dates: start: 19990630, end: 19990930
  3. NUTROPIN AQ [Suspect]
     Active Substance: SOMATROPIN
     Route: 058
     Dates: start: 19990630, end: 19990930

REACTIONS (2)
  - Depression [Recovering/Resolving]
  - Anxiety [Unknown]

NARRATIVE: CASE EVENT DATE: 19990917
